FAERS Safety Report 15884361 (Version 2)
Quarter: 2019Q1

REPORT INFORMATION
  Report Type: Spontaneous
  Country: US (occurrence: US)
  Receive Date: 20190129
  Receipt Date: 20190204
  Transmission Date: 20190417
  Serious: Yes (Other)
  Sender: FDA-Public Use
  Company Number: US-PFIZER INC-2019037348

PATIENT
  Age: 71 Year
  Sex: Female
  Weight: 81.65 kg

DRUGS (2)
  1. LYRICA [Suspect]
     Active Substance: PREGABALIN
     Indication: PAIN
     Dosage: 50 MG, 2X/DAY
     Route: 048
     Dates: start: 20181214, end: 20190119
  2. TRAMADOL. [Concomitant]
     Active Substance: TRAMADOL
     Dosage: UNK

REACTIONS (8)
  - Wheezing [Unknown]
  - Malaise [Unknown]
  - Pruritus [Recovering/Resolving]
  - Rash generalised [Recovering/Resolving]
  - Pollakiuria [Unknown]
  - Insomnia [Unknown]
  - Bloody discharge [Unknown]
  - Dyspnoea [Unknown]

NARRATIVE: CASE EVENT DATE: 201901
